FAERS Safety Report 9753011 (Version 1)
Quarter: 2013Q4

REPORT INFORMATION
  Report Type: Spontaneous
  Country: FR (occurrence: FR)
  Receive Date: 20131213
  Receipt Date: 20131213
  Transmission Date: 20140711
  Serious: Yes (Hospitalization)
  Sender: FDA-Public Use
  Company Number: FR-JNJFOC-20131206260

PATIENT
  Age: 87 Year
  Sex: Female

DRUGS (11)
  1. XARELTO [Suspect]
     Indication: CEREBROVASCULAR ACCIDENT PROPHYLAXIS
     Route: 048
     Dates: start: 20121107
  2. XARELTO [Suspect]
     Indication: ATRIAL FIBRILLATION
     Route: 048
     Dates: start: 20121107
  3. SEROPLEX [Concomitant]
     Route: 065
  4. LASILIX [Concomitant]
     Route: 065
  5. AMAREL [Concomitant]
     Route: 065
  6. HEMIGOXINE [Concomitant]
     Route: 065
  7. EBIXA [Concomitant]
     Route: 065
  8. DOLIPRANE [Concomitant]
     Route: 065
  9. TILDIEM [Concomitant]
     Route: 065
  10. XANAX [Concomitant]
     Route: 065
  11. KALEORID [Concomitant]
     Route: 065

REACTIONS (1)
  - Peripheral artery thrombosis [Recovered/Resolved]
